FAERS Safety Report 12614715 (Version 1)
Quarter: 2016Q3

REPORT INFORMATION
  Report Type: Spontaneous
  Country: JP (occurrence: JP)
  Receive Date: 20160802
  Receipt Date: 20160802
  Transmission Date: 20161109
  Serious: Yes (Other)
  Sender: FDA-Public Use
  Company Number: JP-TEVA-681480ISR

PATIENT
  Age: 80 Year
  Sex: Male

DRUGS (5)
  1. PROCARBAZINE [Suspect]
     Active Substance: PROCARBAZINE
     Indication: LYMPHOMA
     Dosage: EVERY OTHER DAY
     Route: 048
     Dates: start: 201501
  2. CYCLOPHOSPHAMIDE. [Suspect]
     Active Substance: CYCLOPHOSPHAMIDE
     Indication: LYMPHOMA
     Dosage: EVERY OTHER DAY
     Route: 048
     Dates: start: 201501
  3. PREDNISOLONE. [Suspect]
     Active Substance: PREDNISOLONE
     Indication: LYMPHOMA
     Dates: start: 201412
  4. ETOPOSIDE. [Suspect]
     Active Substance: ETOPOSIDE
     Indication: LYMPHOMA
     Dosage: EVERY OTHER DAY
     Route: 048
     Dates: start: 201501
  5. PREDNISOLONE. [Suspect]
     Active Substance: PREDNISOLONE
     Dosage: EVERY OTHER DAY
     Route: 048
     Dates: start: 201501

REACTIONS (1)
  - Cytopenia [Unknown]
